FAERS Safety Report 9268702 (Version 3)
Quarter: 2014Q3

REPORT INFORMATION
  Report Type: Report from Study
  Country: US (occurrence: US)
  Receive Date: 20130502
  Receipt Date: 20140902
  Transmission Date: 20150326
  Serious: Yes (Other)
  Sender: FDA-Public Use
  Company Number: US-ALEXION-A201300351

PATIENT

DRUGS (1)
  1. SOLIRIS [Suspect]
     Active Substance: ECULIZUMAB
     Indication: PAROXYSMAL NOCTURNAL HAEMOGLOBINURIA
     Dosage: 900 MG, Q2W
     Route: 042
     Dates: start: 20130328

REACTIONS (12)
  - Stress [Unknown]
  - Haemochromatosis [Unknown]
  - Blindness [Unknown]
  - Panic attack [Unknown]
  - Insomnia [Unknown]
  - Fatigue [Unknown]
  - Bronchitis [Unknown]
  - Memory impairment [Unknown]
  - Depression [Unknown]
  - Macular degeneration [Unknown]
  - Urinary tract infection [Unknown]
  - Infection [Unknown]

NARRATIVE: CASE EVENT DATE: 201302
